FAERS Safety Report 25144353 (Version 1)
Quarter: 2025Q2

REPORT INFORMATION
  Report Type: Spontaneous
  Country: CA (occurrence: None)
  Receive Date: 20250401
  Receipt Date: 20250401
  Transmission Date: 20250717
  Serious: Yes (Hospitalization)
  Sender: ORION
  Company Number: CA-PFIZER INC-202500067974

PATIENT
  Age: 63 Year
  Sex: Female
  Weight: 72.562 kg

DRUGS (7)
  1. METHOTREXATE [Suspect]
     Active Substance: METHOTREXATE
     Indication: Product used for unknown indication
     Dosage: 2.5MG X 8 PILLS, EVERY SATURDAY
  2. AZATHIOPRINE [Concomitant]
     Active Substance: AZATHIOPRINE
  3. PROPRANOLOL [Concomitant]
     Active Substance: PROPRANOLOL HYDROCHLORIDE
  4. ROSUVASTATIN [Concomitant]
     Active Substance: ROSUVASTATIN
  5. ASPIRIN [Concomitant]
     Active Substance: ASPIRIN
  6. FOLIC ACID [Concomitant]
     Active Substance: FOLIC ACID
  7. PREDNISONE [Concomitant]
     Active Substance: PREDNISONE

REACTIONS (2)
  - Aneurysm [Unknown]
  - Internal haemorrhage [Unknown]
